APPROVED DRUG PRODUCT: IVADANTIN
Active Ingredient: NITROFURANTOIN SODIUM
Strength: EQ 180MG BASE/VIAL
Dosage Form/Route: INJECTABLE;INJECTION
Application: N012402 | Product #001
Applicant: PROCTER AND GAMBLE PHARMACEUTICALS INC SUB PROCTER AND GAMBLE CO
Approved: Approved Prior to Jan 1, 1982 | RLD: No | RS: No | Type: DISCN